FAERS Safety Report 5651093-5 (Version None)
Quarter: 2008Q1

REPORT INFORMATION
  Report Type: 
  Country: None (occurrence: None)
  Receive Date: 20080305
  Receipt Date: 20080226
  Transmission Date: 20080703
  Serious: Yes (Hospitalization, Other)
  Sender: FDA-Public Use
  Company Number: US-ELI_LILLY_AND_COMPANY-US200801000477

PATIENT
  Sex: Female

DRUGS (7)
  1. FORTEO [Suspect]
     Indication: OSTEOPOROSIS
     Dosage: 20 UG, DAILY (1/D)
     Dates: end: 20071229
  2. FORTEO [Suspect]
     Dates: start: 20080102
  3. TOPROL [Concomitant]
     Indication: CARDIAC DISORDER
  4. METHOTREXATE [Concomitant]
  5. PLAQUENIL [Concomitant]
  6. LOVASTATIN [Concomitant]
  7. ASPIRIN [Concomitant]

REACTIONS (1)
  - AORTIC ANEURYSM RUPTURE [None]
